FAERS Safety Report 24812066 (Version 2)
Quarter: 2025Q1

REPORT INFORMATION
  Report Type: Spontaneous
  Country: US (occurrence: US)
  Receive Date: 20250106
  Receipt Date: 20250113
  Transmission Date: 20250408
  Serious: No
  Sender: PFIZER
  Company Number: US-PFIZER INC-202500000386

PATIENT
  Age: 19 Year
  Sex: Female

DRUGS (7)
  1. CIBINQO [Suspect]
     Active Substance: ABROCITINIB
     Indication: Dermatitis atopic
     Dosage: 100 MG, DAILY
     Route: 048
  2. ALBUTEROL SULFATE [Concomitant]
     Active Substance: ALBUTEROL SULFATE
  3. BLISOVI FE 1/20 [Concomitant]
     Active Substance: ETHINYL ESTRADIOL\NORETHINDRONE ACETATE
  4. CLOBETASOL [Concomitant]
     Active Substance: CLOBETASOL
  5. METRONIDAZOLE [Concomitant]
     Active Substance: METRONIDAZOLE
  6. MOMETASONE [Concomitant]
     Active Substance: MOMETASONE
  7. PIMECROLIMUS [Concomitant]
     Active Substance: PIMECROLIMUS

REACTIONS (1)
  - Condition aggravated [Not Recovered/Not Resolved]
